FAERS Safety Report 17959273 (Version 2)
Quarter: 2020Q3

REPORT INFORMATION
  Report Type: Spontaneous
  Country: FR (occurrence: FR)
  Receive Date: 20200629
  Receipt Date: 20200706
  Transmission Date: 20201103
  Serious: Yes (Hospitalization, Other)
  Sender: FDA-Public Use
  Company Number: FR-PFIZER INC-2020247491

PATIENT
  Age: 20 Year
  Sex: Male
  Weight: 57 kg

DRUGS (4)
  1. IBUPROFEN. [Suspect]
     Active Substance: IBUPROFEN
     Indication: OTITIS EXTERNA
     Dosage: 400 MG, 3X/DAY (FOR 3?4 DAYS)
     Route: 048
     Dates: start: 202003, end: 202003
  2. CELLCEPT [Concomitant]
     Active Substance: MYCOPHENOLATE MOFETIL\MYCOPHENOLATE MOFETIL HYDROCHLORIDE
     Dosage: 500 MG, 2X/DAY (IN THE MORNING AND IN THE EVENING)
  3. CORTANCYL [Suspect]
     Active Substance: PREDNISONE
     Indication: RENAL TRANSPLANT
     Dosage: 10 MG, 1X/DAY
     Route: 048
  4. ADVAGRAF [Concomitant]
     Active Substance: TACROLIMUS
     Dosage: 2 MG, 1X/DAY (ONCE IN THE MORNING)

REACTIONS (4)
  - Vomiting [Recovering/Resolving]
  - Infection [Recovered/Resolved]
  - COVID-19 [Recovered/Resolved]
  - Hepatocellular injury [Recovering/Resolving]

NARRATIVE: CASE EVENT DATE: 202003
